FAERS Safety Report 7681262-4 (Version None)
Quarter: 2011Q3

REPORT INFORMATION
  Report Type: 
  Country: None (occurrence: None)
  Receive Date: 20110812
  Receipt Date: 20110811
  Transmission Date: 20111222
  Serious: Yes (Death)
  Sender: FDA-Public Use
  Company Number: IL-ROCHE-796300

PATIENT
  Sex: Female
  Weight: 85 kg

DRUGS (5)
  1. METHOXY POLYETHYLENE GLYCOL-EPOETIN BETA [Suspect]
     Dosage: 360+ 250
     Route: 042
     Dates: start: 20100101
  2. IKAPRESS [Concomitant]
     Indication: HYPERTENSION
     Dosage: 120 , DAILY
     Route: 048
  3. CARTIA XT [Concomitant]
     Dosage: 100, DAILY
     Route: 048
  4. INSULIN [Concomitant]
     Dosage: 60, DAILY
     Route: 058
  5. ENALADEX [Concomitant]
     Indication: HYPERTENSION
     Dosage: 10, DAILY
     Route: 048

REACTIONS (1)
  - DEATH [None]
